FAERS Safety Report 23821231 (Version 1)
Quarter: 2024Q2

REPORT INFORMATION
  Report Type: Spontaneous
  Country: US (occurrence: None)
  Receive Date: 20240504
  Receipt Date: 20240504
  Transmission Date: 20240716
  Serious: Yes (unspecified)
  Sender: FDA-Public Use
  Company Number: None

PATIENT
  Age: 67 Year
  Sex: Female
  Weight: 68.4 kg

DRUGS (2)
  1. PROLIA [Suspect]
     Active Substance: DENOSUMAB
     Indication: Osteoporosis
     Dates: start: 20240212, end: 20240215
  2. GASTRIC BYPASS VITAMINS [Concomitant]

REACTIONS (10)
  - Chills [None]
  - Headache [None]
  - Eye irritation [None]
  - Noninfective gingivitis [None]
  - Toothache [None]
  - Bone pain [None]
  - Pain in extremity [None]
  - Throat irritation [None]
  - Ear pruritus [None]
  - Drug hypersensitivity [None]

NARRATIVE: CASE EVENT DATE: 20240215
